FAERS Safety Report 7755460-5 (Version None)
Quarter: 2011Q3

REPORT INFORMATION
  Report Type: 
  Country: None (occurrence: None)
  Receive Date: 20110916
  Receipt Date: 20110905
  Transmission Date: 20111222
  Serious: Yes (Hospitalization)
  Sender: FDA-Public Use
  Company Number: US-RANBAXY-2011US-48097

PATIENT
  Age: 61 Year
  Sex: Female

DRUGS (4)
  1. TEMAZEPAM [Concomitant]
     Indication: PRODUCT USED FOR UNKNOWN INDICATION
     Dosage: UNK, UNK
     Route: 065
  2. SERTRALINE HYDROCHLORIDE [Concomitant]
     Indication: PRODUCT USED FOR UNKNOWN INDICATION
     Dosage: UNK, UNK
     Route: 065
  3. DIPHENHYDRAMINE HCL [Concomitant]
     Indication: PRODUCT USED FOR UNKNOWN INDICATION
     Dosage: UNK, UNK
     Route: 065
  4. VERPAMIL HCL [Suspect]
     Indication: HYPERTENSION
     Dosage: 240 MG, APROXIMATELY 30 TABLETS
     Route: 065

REACTIONS (4)
  - MYOCLONUS [None]
  - NODAL ARRHYTHMIA [None]
  - SHOCK [None]
  - OVERDOSE [None]
